FAERS Safety Report 19240418 (Version 1)
Quarter: 2021Q2

REPORT INFORMATION
  Report Type: Report from Study
  Country: US (occurrence: US)
  Receive Date: 20210511
  Receipt Date: 20210511
  Transmission Date: 20210717
  Serious: Yes (Other)
  Sender: FDA-Public Use
  Company Number: US-ROCHE-2631549

PATIENT
  Age: 67 Year
  Sex: Male
  Weight: 71.7 kg

DRUGS (2)
  1. ATEZOLIZUMAB. [Suspect]
     Active Substance: ATEZOLIZUMAB
     Indication: LUNG ADENOCARCINOMA
     Dosage: ON AN UNKNOWN DATE, HE RECEIVED ATEZOLIZUMAB 1260 MG.
     Route: 041
     Dates: start: 20200217
  2. COBIMETINIB. [Suspect]
     Active Substance: COBIMETINIB
     Indication: LUNG ADENOCARCINOMA
     Dosage: ON DAYS 1?21
     Route: 048
     Dates: start: 20200217

REACTIONS (1)
  - Colitis [Unknown]
